FAERS Safety Report 8464268-7 (Version None)
Quarter: 2012Q2

REPORT INFORMATION
  Report Type: 
  Country: None (occurrence: None)
  Receive Date: 20120625
  Receipt Date: 20120619
  Transmission Date: 20120825
  Serious: Yes (Life-Threatening, Other)
  Sender: FDA-Public Use
  Company Number: DK-PFIZER INC-2004098710

PATIENT
  Age: 39 Year
  Sex: Female

DRUGS (3)
  1. DIAZEPAM [Concomitant]
     Route: 065
  2. ZINACEF [Concomitant]
     Route: 042
  3. FOSPHENYTOIN SODIUM [Suspect]
     Indication: STATUS EPILEPTICUS
     Route: 042

REACTIONS (1)
  - RESPIRATORY ARREST [None]
